FAERS Safety Report 4303003-0 (Version None)
Quarter: 2004Q1

REPORT INFORMATION
  Report Type: 
  Country: None (occurrence: None)
  Receive Date: 20040224
  Receipt Date: 20040210
  Transmission Date: 20041129
  Serious: Yes (Hospitalization)
  Sender: FDA-Public Use
  Company Number: IT-GLAXOSMITHKLINE-B0323081A

PATIENT
  Age: 38 Year
  Sex: Female

DRUGS (3)
  1. CLAVULIN [Suspect]
     Indication: INFLUENZA
     Dosage: 1G TWICE PER DAY
     Route: 048
     Dates: start: 20031120, end: 20031120
  2. NIMESULIDE [Concomitant]
     Indication: INFLUENZA
     Dates: start: 20031120, end: 20031120
  3. PARACETAMOL [Concomitant]
     Indication: INFLUENZA
     Route: 048
     Dates: start: 20031120, end: 20031120

REACTIONS (2)
  - ANGIONEUROTIC OEDEMA [None]
  - URTICARIA [None]
